FAERS Safety Report 24755905 (Version 2)
Quarter: 2025Q4

REPORT INFORMATION
  Report Type: Spontaneous
  Country: CA (occurrence: CA)
  Receive Date: 20241219
  Receipt Date: 20251230
  Transmission Date: 20260118
  Serious: Yes (Other)
  Sender: BIOMARIN
  Company Number: CA-BIOMARINAP-CA-2024-162556

PATIENT
  Age: 9 Year
  Sex: Male
  Weight: 18.6 kg

DRUGS (1)
  1. VIMIZIM [Suspect]
     Active Substance: ELOSULFASE ALFA
     Indication: Mucopolysaccharidosis IV
     Dosage: 40 MILLIGRAM, QW
     Dates: start: 20210325

REACTIONS (14)
  - Cervical spinal stenosis [Not Recovered/Not Resolved]
  - Foramen magnum stenosis [Not Recovered/Not Resolved]
  - Thoracic spinal stenosis [Not Recovered/Not Resolved]
  - Knee deformity [Not Recovered/Not Resolved]
  - Foot deformity [Not Recovered/Not Resolved]
  - Aortic valve thickening [Unknown]
  - Dislocation of vertebra [Not Recovered/Not Resolved]
  - Lordosis [Not Recovered/Not Resolved]
  - Musculoskeletal stiffness [Unknown]
  - Nasopharyngitis [Unknown]
  - Enamel anomaly [Unknown]
  - Back pain [Unknown]
  - Cleft lip and palate [Unknown]
  - Poor venous access [Unknown]

NARRATIVE: CASE EVENT DATE: 20250101
